FAERS Safety Report 4354967-0 (Version None)
Quarter: 2004Q2

REPORT INFORMATION
  Report Type: 
  Country: None (occurrence: None)
  Receive Date: 20040504
  Receipt Date: 20040420
  Transmission Date: 20050107
  Serious: Yes (Hospitalization)
  Sender: FDA-Public Use
  Company Number: 188102

PATIENT
  Age: 54 Year
  Sex: Male
  Weight: 92.9874 kg

DRUGS (8)
  1. AVONEX [Suspect]
     Indication: MULTIPLE SCLEROSIS
     Dosage: 30 MCG QW IM
     Route: 042
     Dates: start: 20010625, end: 20030901
  2. AVONEX [Suspect]
     Indication: MULTIPLE SCLEROSIS
     Dosage: 30 MCG QW IM
     Route: 030
     Dates: start: 20030901, end: 20040209
  3. AVONEX [Suspect]
     Indication: MULTIPLE SCLEROSIS
     Dosage: 15 MCG QW IM
     Route: 030
     Dates: start: 20040216
  4. MULTI-VITAMINS [Concomitant]
  5. NEURONTIN [Concomitant]
  6. BACLOFEN [Concomitant]
  7. METOPROLOL [Concomitant]
  8. DIOVAN HCT [Concomitant]

REACTIONS (10)
  - ABASIA [None]
  - ACUTE MYOCARDIAL INFARCTION [None]
  - BACK PAIN [None]
  - BLOOD CHOLESTEROL INCREASED [None]
  - CORONARY ARTERY OCCLUSION [None]
  - HEADACHE [None]
  - HEMIPARESIS [None]
  - HERPES ZOSTER [None]
  - SPINAL COLUMN STENOSIS [None]
  - TREMOR [None]
